FAERS Safety Report 17906880 (Version 8)
Quarter: 2022Q4

REPORT INFORMATION
  Report Type: Spontaneous
  Country: US (occurrence: US)
  Receive Date: 20200617
  Receipt Date: 20221104
  Transmission Date: 20230112
  Serious: No
  Sender: FDA-Public Use
  Company Number: US-PFIZER INC-2020233298

PATIENT
  Age: 59 Year
  Sex: Female

DRUGS (1)
  1. LIOTHYRONINE SODIUM [Suspect]
     Active Substance: LIOTHYRONINE SODIUM
     Indication: Hypothyroidism
     Dosage: UNK

REACTIONS (2)
  - Drug ineffective [Unknown]
  - Feeling abnormal [Unknown]
